FAERS Safety Report 6210318-8 (Version None)
Quarter: 2009Q2

REPORT INFORMATION
  Report Type: 
  Country: None (occurrence: None)
  Receive Date: 20090529
  Receipt Date: 20090529
  Transmission Date: 20091009
  Serious: Yes (Other)
  Sender: FDA-Public Use
  Company Number: None

PATIENT
  Age: 53 Year
  Sex: Female
  Weight: 64.8644 kg

DRUGS (3)
  1. LYRICA [Suspect]
     Indication: FIBROMYALGIA
     Dosage: 50 MG BID PO
     Route: 048
     Dates: start: 20080510, end: 20080901
  2. LEVOTHYROXINE [Concomitant]
  3. NAPROXEN [Concomitant]

REACTIONS (3)
  - DISTURBANCE IN ATTENTION [None]
  - FEAR [None]
  - THINKING ABNORMAL [None]
